FAERS Safety Report 16016885 (Version 10)
Quarter: 2021Q4

REPORT INFORMATION
  Report Type: Spontaneous
  Country: US (occurrence: US)
  Receive Date: 20190228
  Receipt Date: 20211203
  Transmission Date: 20220303
  Serious: Yes (Other)
  Sender: FDA-Public Use
  Company Number: US-PFIZER INC-2019079954

PATIENT
  Age: 76 Year
  Sex: Female
  Weight: 58.97 kg

DRUGS (5)
  1. LYRICA [Suspect]
     Active Substance: PREGABALIN
     Indication: Neuropathy peripheral
     Dosage: 300 MG, 2X/DAY
     Route: 048
  2. LYRICA [Suspect]
     Active Substance: PREGABALIN
     Indication: Neuralgia
     Dosage: 20 MG, UNK (20 MG X 2)
     Dates: start: 2016
  3. LYRICA [Suspect]
     Active Substance: PREGABALIN
     Indication: Spinal cord injury
     Dosage: 1 CAPSULE, TWICE DAILY
     Route: 048
     Dates: start: 20200114
  4. LYRICA [Suspect]
     Active Substance: PREGABALIN
     Indication: Polyneuropathy
  5. POMALIDOMIDE [Concomitant]
     Active Substance: POMALIDOMIDE
     Dosage: UNK

REACTIONS (8)
  - Suicide threat [Unknown]
  - Amnesia [Unknown]
  - Wrong strength [Unknown]
  - Arthralgia [Recovered/Resolved]
  - Cold sweat [Recovered/Resolved]
  - Withdrawal syndrome [Recovered/Resolved]
  - Malaise [Unknown]
  - Eye disorder [Unknown]

NARRATIVE: CASE EVENT DATE: 20190217
